FAERS Safety Report 9336869 (Version 1)
Quarter: 2013Q2

REPORT INFORMATION
  Report Type: Spontaneous
  Country: CO (occurrence: CO)
  Receive Date: 20130607
  Receipt Date: 20130607
  Transmission Date: 20140414
  Serious: Yes (Other)
  Sender: FDA-Public Use
  Company Number: CO-PFIZER INC-2013171445

PATIENT
  Sex: Female

DRUGS (2)
  1. AROMASIN [Suspect]
     Indication: BREAST CANCER METASTATIC
     Dosage: UNK
  2. EVEROLIMUS [Suspect]
     Indication: BREAST CANCER METASTATIC
     Dosage: UNK

REACTIONS (1)
  - Pulmonary embolism [Unknown]
